FAERS Safety Report 5524542-0 (Version None)
Quarter: 2007Q4

REPORT INFORMATION
  Report Type: 
  Country: None (occurrence: None)
  Receive Date: 20071123
  Receipt Date: 20071105
  Transmission Date: 20080405
  Serious: Yes (Other)
  Sender: FDA-Public Use
  Company Number: GB-RANBAXY-2007RR-11281

PATIENT

DRUGS (2)
  1. RISPERIDONE 0.5MG FILM-COATED TABLETS [Suspect]
     Indication: CONDUCT DISORDER
     Dosage: 1.5 MG, UNK
     Route: 048
     Dates: start: 20051001, end: 20060101
  2. CONCERTA [Suspect]
     Indication: ATTENTION DEFICIT/HYPERACTIVITY DISORDER
     Dosage: 36 MG, UNK
     Route: 048
     Dates: start: 20060201, end: 20060101

REACTIONS (2)
  - DRUG INTERACTION [None]
  - DYSKINESIA [None]
